FAERS Safety Report 9904531 (Version 2)
Quarter: 2014Q1

REPORT INFORMATION
  Report Type: Spontaneous
  Country: GB (occurrence: GB)
  Receive Date: 20140218
  Receipt Date: 20140218
  Transmission Date: 20141002
  Serious: Yes (Life-Threatening, Hospitalization)
  Sender: FDA-Public Use
  Company Number: GB-BEH-200208491

PATIENT
  Age: 49 Year
  Sex: Female
  Weight: 104 kg

DRUGS (5)
  1. HAEMATE P [Suspect]
     Indication: CHOLECYSTECTOMY
     Dosage: DAILY DOSE QUANTITY: 6000, DAILY DOSE UNIT: IU
     Dates: start: 20000525, end: 20000525
  2. HAEMATE P [Suspect]
     Indication: VON WILLEBRAND^S DISEASE
     Dosage: DAILY DOSE QUANTITY: 2500, DAILY DOSE UNIT: IU
     Dates: start: 20000526, end: 20000527
  3. HAEMATE P [Suspect]
     Dosage: TWO UNSPECIFIED DOSES
  4. PREMARIN [Suspect]
     Indication: HORMONE REPLACEMENT THERAPY
  5. TRANEXAMIC ACID [Suspect]
     Dosage: DAILY DOSE QUANTITY: 4, DAILY DOSE UNIT: G

REACTIONS (3)
  - Pulmonary embolism [Unknown]
  - Chest pain [Unknown]
  - Dyspnoea [Unknown]
